FAERS Safety Report 24304841 (Version 1)
Quarter: 2024Q3

REPORT INFORMATION
  Report Type: Spontaneous
  Country: US (occurrence: US)
  Receive Date: 20240910
  Receipt Date: 20240910
  Transmission Date: 20241017
  Serious: No
  Sender: ROCHE
  Company Number: US-ROCHE-10000074015

PATIENT
  Sex: Female

DRUGS (1)
  1. ACTEMRA [Suspect]
     Active Substance: TOCILIZUMAB
     Indication: Giant cell arteritis
     Dosage: AUTOINJECTOR
     Route: 058
     Dates: start: 20240612

REACTIONS (3)
  - Device issue [Unknown]
  - Product quality issue [Unknown]
  - Ill-defined disorder [Unknown]
